FAERS Safety Report 4784596-6 (Version None)
Quarter: 2005Q3

REPORT INFORMATION
  Report Type: 
  Country: None (occurrence: None)
  Receive Date: 20050930
  Receipt Date: 20050926
  Transmission Date: 20060218
  Serious: Yes (Death, Other)
  Sender: FDA-Public Use
  Company Number: US-MERCK-0509USA03864

PATIENT
  Age: 62 Year
  Sex: Female

DRUGS (2)
  1. VIOXX [Suspect]
     Indication: INTERVERTEBRAL DISC DEGENERATION
     Route: 048
     Dates: end: 20011201
  2. VIOXX [Suspect]
     Route: 048
     Dates: start: 20011201, end: 20040401

REACTIONS (1)
  - ACUTE MYOCARDIAL INFARCTION [None]
